FAERS Safety Report 17370233 (Version 1)
Quarter: 2020Q1

REPORT INFORMATION
  Report Type: Spontaneous
  Country: EG (occurrence: EG)
  Receive Date: 20200205
  Receipt Date: 20200205
  Transmission Date: 20200409
  Serious: Yes (Other)
  Sender: FDA-Public Use
  Company Number: EG-LUPIN PHARMACEUTICALS INC.-2020-00467

PATIENT
  Age: 7 Month
  Sex: Male
  Weight: 9.5 kg

DRUGS (1)
  1. CLOBETASOL PROPIONATE. [Suspect]
     Active Substance: CLOBETASOL PROPIONATE
     Indication: DERMATITIS DIAPER
     Dosage: UNK UNK, QD (4-5 TIMES DAILY) FORMULATION: CREAM
     Route: 061

REACTIONS (10)
  - Hypercalcaemia [Recovered/Resolved]
  - Product use issue [Unknown]
  - Withdrawal syndrome [Unknown]
  - Adrenal insufficiency [Unknown]
  - Oral candidiasis [Recovering/Resolving]
  - Left ventricular hypertrophy [Unknown]
  - Intentional product misuse [Unknown]
  - Cushing^s syndrome [Unknown]
  - Hypercholesterolaemia [Unknown]
  - Drug ineffective [Unknown]
